FAERS Safety Report 21631464 (Version 1)
Quarter: 2022Q4

REPORT INFORMATION
  Report Type: Spontaneous
  Country: US (occurrence: None)
  Receive Date: 20221123
  Receipt Date: 20221123
  Transmission Date: 20230113
  Serious: Yes (Other)
  Sender: FDA-Public Use
  Company Number: US-Hikma Pharmaceuticals USA Inc.-US-H14001-22-02732

PATIENT
  Age: 27 Year
  Sex: Female
  Weight: 83.7 kg

DRUGS (11)
  1. IFOSFAMIDE [Suspect]
     Active Substance: IFOSFAMIDE
     Indication: Osteosarcoma
     Dosage: 20% MORE THAN THE 2G - ABOUT 2500MG
     Route: 042
  2. IFOSFAMIDE [Suspect]
     Active Substance: IFOSFAMIDE
     Dosage: DOSE WAS REDUCED BY 20% (2G (2070MG PER BAG))
     Route: 041
     Dates: start: 20221017, end: 20221019
  3. IFOSFAMIDE [Suspect]
     Active Substance: IFOSFAMIDE
     Dosage: IFOSFAMID 1300 MG/M^2 (2585 MG) AND MESNA 2590 MG IN 0.9% NS, 1128 ML INFUSION; 47 ML/HR RATE
     Route: 041
     Dates: start: 20221015, end: 20221017
  4. IFOSFAMIDE [Suspect]
     Active Substance: IFOSFAMIDE
     Dosage: IFOSFAMIDE 1404 MG/M^2 (2795 MG) AND MESNA 2790 MG IN 0.9% NS, 1134 ML INFUSION (LONGER INFUSION TIM
     Route: 041
     Dates: start: 20221020
  5. IFOSFAMIDE [Suspect]
     Active Substance: IFOSFAMIDE
     Dosage: IFOSFAMIDE 936 MG/M^2 (1865 MG) AND MESNA 1860 MG IN 0.9% NS, 1106 ML INFUSION (DOSE REDUCTION); NEW
     Route: 041
     Dates: start: 20221022
  6. MESNA [Suspect]
     Active Substance: MESNA
     Indication: Osteosarcoma
     Dosage: IFOSFAMIDE 1300 MG/M^2 (2585 MG) AND MESNA 2590 MG IN 0.9% NS, 1128 ML INFUSION; 47 ML/HR RATE
     Route: 041
     Dates: start: 20221015, end: 20221017
  7. MESNA [Suspect]
     Active Substance: MESNA
     Dosage: DOSE WAS REDUCED BY 20% (2G (2070MG PER BAG))
     Route: 041
     Dates: start: 20221017, end: 20221019
  8. MESNA [Suspect]
     Active Substance: MESNA
     Dosage: IFOSFAMIDE 1404 MG/M^2 (2795 MG) AND MESNA 2790 MG IN 0.9% NS, 1134 ML INFUSION (LONGER INFUSION TIM
     Route: 041
     Dates: start: 20221020
  9. MESNA [Suspect]
     Active Substance: MESNA
     Dosage: IFOSFAMIDE 936 MG/M^2 (1865 MG) AND MESNA 1860 MG IN 0.9% NS, 1106 ML INFUSION (DOSE REDUCTION); NEW
     Route: 041
     Dates: start: 20221022
  10. DEXAMETHASONE [Suspect]
     Active Substance: DEXAMETHASONE
     Indication: Osteosarcoma
     Route: 065
  11. DEXAMETHASONE [Suspect]
     Active Substance: DEXAMETHASONE
     Route: 065

REACTIONS (7)
  - Neurotoxicity [Unknown]
  - Tremor [Recovered/Resolved]
  - Confusional state [Unknown]
  - Hallucination [Recovered/Resolved]
  - Somnolence [Unknown]
  - Condition aggravated [Unknown]
  - Lethargy [Recovering/Resolving]

NARRATIVE: CASE EVENT DATE: 20221017
